FAERS Safety Report 6210740-X (Version None)
Quarter: 2009Q2

REPORT INFORMATION
  Report Type: 
  Country: None (occurrence: None)
  Receive Date: 20090528
  Receipt Date: 20090528
  Transmission Date: 20091009
  Serious: No
  Sender: FDA-Public Use
  Company Number: None

PATIENT
  Age: 60 Year
  Sex: Female
  Weight: 56.6996 kg

DRUGS (1)
  1. ACTONEL [Suspect]
     Indication: OSTEOPOROSIS
     Dosage: ONE PILL ONCE EACH WEEK PO
     Route: 048
     Dates: start: 20060101, end: 20090527

REACTIONS (2)
  - JAW CYST [None]
  - OSTEOMA [None]
